FAERS Safety Report 8923084 (Version 1)
Quarter: 2012Q4

REPORT INFORMATION
  Report Type: Spontaneous
  Country: US (occurrence: None)
  Receive Date: 20121115
  Receipt Date: 20121115
  Transmission Date: 20130627
  Serious: Yes (Other)
  Sender: FDA-Public Use
  Company Number: None

PATIENT
  Age: 52 Year
  Sex: Male
  Weight: 95.26 kg

DRUGS (2)
  1. ACIPHEX [Suspect]
     Indication: GASTRITIS
     Route: 048
     Dates: start: 20111014, end: 20120111
  2. NEXIUM 40 MG ASTRAZENECA [Suspect]
     Route: 048
     Dates: start: 20120116, end: 20120816

REACTIONS (2)
  - Nausea [None]
  - Dizziness [None]
